FAERS Safety Report 4469167-3 (Version None)
Quarter: 2004Q4

REPORT INFORMATION
  Report Type: 
  Country: None (occurrence: None)
  Receive Date: 20041005
  Receipt Date: 20040923
  Transmission Date: 20050328
  Serious: Yes (Other)
  Sender: FDA-Public Use
  Company Number: K200401461

PATIENT
  Age: 19 Year
  Sex: Female
  Weight: 47.6 kg

DRUGS (4)
  1. NORDETTE-21(LEVONORGESTREL, ETHINYLESTRADIOL) TABLET, 30MCG [Suspect]
     Indication: ORAL CONTRACEPTION
     Dosage: 30 MCG, ORAL
     Route: 048
     Dates: start: 20030901
  2. LORATADINE (LORATADINE) 10 MG [Suspect]
     Indication: SEASONAL ALLERGY
     Dosage: 10 MG , ORAL
     Route: 048
     Dates: start: 20030721
  3. SALBUTAMOL (SALBUTAMOL) [Concomitant]
  4. LEVOTHYROXINE SODIUM [Concomitant]

REACTIONS (5)
  - DRUG EXPOSURE DURING PREGNANCY [None]
  - DRUG INEFFECTIVE [None]
  - DRUG INTERACTION [None]
  - PREGNANCY ON ORAL CONTRACEPTIVE [None]
  - UNINTENDED PREGNANCY [None]
